FAERS Safety Report 18775193 (Version 4)
Quarter: 2025Q4

REPORT INFORMATION
  Report Type: Report from Study
  Country: US (occurrence: US)
  Receive Date: 20210122
  Receipt Date: 20251201
  Transmission Date: 20260117
  Serious: Yes (Other)
  Sender: TAKEDA
  Company Number: US-TAKEDA-2020TUS052902

PATIENT
  Age: 34 Year
  Sex: Female

DRUGS (2)
  1. VEDOLIZUMAB [Suspect]
     Active Substance: VEDOLIZUMAB
     Indication: Colitis ulcerative
     Dosage: 300 MILLIGRAM
  2. VEDOLIZUMAB [Suspect]
     Active Substance: VEDOLIZUMAB
     Dosage: 300 MILLIGRAM, Q6WEEKS

REACTIONS (4)
  - Colitis ulcerative [Unknown]
  - Pain of skin [Unknown]
  - Pregnancy [Unknown]
  - Fatigue [Unknown]
